FAERS Safety Report 6635615-3 (Version None)
Quarter: 2010Q1

REPORT INFORMATION
  Report Type: 
  Country: None (occurrence: None)
  Receive Date: 20100312
  Receipt Date: 20100312
  Transmission Date: 20100710
  Serious: Yes (Life-Threatening, Hospitalization, Disabling, Other)
  Sender: FDA-Public Use
  Company Number: None

PATIENT
  Sex: Female
  Weight: 58.0604 kg

DRUGS (1)
  1. TEMODAR [Suspect]
     Indication: NEOPLASM
     Dosage: 200 MG DAILY PILL
     Dates: start: 20080422, end: 20080602

REACTIONS (2)
  - BONE MARROW FAILURE [None]
  - CEREBRAL HAEMORRHAGE [None]
